FAERS Safety Report 4935535-6 (Version None)
Quarter: 2006Q1

REPORT INFORMATION
  Report Type: 
  Country: None (occurrence: None)
  Receive Date: 20060307
  Receipt Date: 20050829
  Transmission Date: 20060701
  Serious: No
  Sender: FDA-Public Use
  Company Number: US-GLAXOSMITHKLINE-A0572195A

PATIENT
  Age: 51 Year
  Sex: Male

DRUGS (9)
  1. REQUIP [Suspect]
     Indication: RESTLESS LEGS SYNDROME
     Dosage: 1MG PER DAY
     Route: 048
     Dates: start: 20050802
  2. PREDNISONE [Concomitant]
  3. TAGAMET [Concomitant]
  4. BENYLIN [Concomitant]
  5. BENADRYL [Concomitant]
  6. ACTONEL [Concomitant]
  7. VICODIN [Concomitant]
  8. IMITREX [Concomitant]
  9. TOPAMAX [Concomitant]

REACTIONS (3)
  - DRUG INEFFECTIVE [None]
  - ILL-DEFINED DISORDER [None]
  - MOBILITY DECREASED [None]
